FAERS Safety Report 6687612-X (Version None)
Quarter: 2010Q2

REPORT INFORMATION
  Report Type: 
  Country: None (occurrence: None)
  Receive Date: 20100414
  Receipt Date: 20100330
  Transmission Date: 20101027
  Serious: Yes (Hospitalization, Other)
  Sender: FDA-Public Use
  Company Number: 009903

PATIENT
  Sex: Female
  Weight: 73 kg

DRUGS (2)
  1. LEVETIRACETAM [Suspect]
     Indication: EPILEPSY
     Dosage: (1500 MG BID, CONTINUING AS TID INSTEAD OF BID ORAL)
     Route: 048
     Dates: start: 20090724
  2. LACOSAMIDE [Concomitant]

REACTIONS (5)
  - ADVERSE EVENT [None]
  - CONVULSION [None]
  - DRUG EXPOSURE DURING PREGNANCY [None]
  - PREGNANCY TEST POSITIVE [None]
  - ROAD TRAFFIC ACCIDENT [None]
